FAERS Safety Report 7631278-9 (Version None)
Quarter: 2011Q3

REPORT INFORMATION
  Report Type: 
  Country: None (occurrence: None)
  Receive Date: 20110725
  Receipt Date: 20110718
  Transmission Date: 20111222
  Serious: Yes (Death, Life-Threatening, Hospitalization)
  Sender: FDA-Public Use
  Company Number: US-ELI_LILLY_AND_COMPANY-US201107004713

PATIENT
  Sex: Female

DRUGS (3)
  1. HUMULIN R [Suspect]
     Route: 058
  2. HUMULIN R [Suspect]
     Dosage: UNK, PRN
     Route: 058
     Dates: start: 20110401
  3. HUMULIN R [Suspect]
     Indication: TYPE 1 DIABETES MELLITUS
     Dosage: UNK, PRN
     Route: 058
     Dates: start: 20110401

REACTIONS (7)
  - BLOOD GLUCOSE INCREASED [None]
  - CARDIO-RESPIRATORY ARREST [None]
  - OBESITY [None]
  - FOOD POISONING [None]
  - BRAIN DEATH [None]
  - DIABETIC KETOACIDOSIS [None]
  - INSULIN RESISTANCE [None]
